FAERS Safety Report 24602978 (Version 1)
Quarter: 2024Q4

REPORT INFORMATION
  Report Type: Spontaneous
  Country: RO (occurrence: RO)
  Receive Date: 20241111
  Receipt Date: 20241111
  Transmission Date: 20250115
  Serious: Yes (Other)
  Sender: PFIZER
  Company Number: RO-ABBVIE-5978199

PATIENT
  Sex: Male

DRUGS (1)
  1. ADALIMUMAB [Suspect]
     Active Substance: ADALIMUMAB
     Dosage: FREQ:2 WK;FOR 2 YEAR
     Route: 058
     Dates: start: 201312

REACTIONS (8)
  - Toxocariasis [Unknown]
  - Angioedema [Unknown]
  - Drug ineffective [Unknown]
  - Urticaria [Unknown]
  - Mycobacterium tuberculosis complex test positive [Unknown]
  - Dermatitis allergic [Unknown]
  - Dermatitis atopic [Unknown]
  - Prurigo [Unknown]

NARRATIVE: CASE EVENT DATE: 20160101
